FAERS Safety Report 4660132-X (Version None)
Quarter: 2005Q2

REPORT INFORMATION
  Report Type: 
  Country: None (occurrence: None)
  Receive Date: 20050505
  Receipt Date: 20050113
  Transmission Date: 20051028
  Serious: No
  Sender: FDA-Public Use
  Company Number: 2005USFACT00237

PATIENT
  Age: 42 Year
  Sex: Female
  Weight: 95.7 kg

DRUGS (8)
  1. FACTIVE [Suspect]
     Indication: RESPIRATORY TRACT INFECTION BACTERIAL
     Dosage: 320.00 MG, SINGLE, ORAL
     Route: 048
     Dates: start: 20050111, end: 20050111
  2. CLARINEX TABLET [Concomitant]
  3. TOPROL-XL [Concomitant]
  4. ALTACE [Concomitant]
  5. METFORMIN HCL [Concomitant]
  6. LIPITOR [Concomitant]
  7. PRILOSEC [Concomitant]
  8. AXERT [Concomitant]

REACTIONS (1)
  - RASH GENERALISED [None]
